FAERS Safety Report 5106847-0 (Version None)
Quarter: 2006Q3

REPORT INFORMATION
  Report Type: 
  Country: None (occurrence: None)
  Receive Date: 20060731
  Receipt Date: 20060303
  Transmission Date: 20061208
  Serious: Yes (Other)
  Sender: FDA-Public Use
  Company Number: US-JNJFOC-20051100048

PATIENT
  Age: 49 Year
  Sex: Female
  Weight: 85.2762 kg

DRUGS (4)
  1. RISPERDAL [Suspect]
     Indication: PSYCHOTIC DISORDER
     Dosage: SEE IMAGE
     Route: 048
     Dates: start: 19950101
  2. ATENOLOL [Concomitant]
  3. PRAVACHOL [Concomitant]
  4. ATIVAN [Concomitant]

REACTIONS (4)
  - AMENORRHOEA [None]
  - DIABETES MELLITUS [None]
  - TACHYCARDIA [None]
  - WEIGHT INCREASED [None]
